FAERS Safety Report 6902859-2 (Version None)
Quarter: 2010Q3

REPORT INFORMATION
  Report Type: 
  Country: None (occurrence: None)
  Receive Date: 20100803
  Receipt Date: 20080624
  Transmission Date: 20110219
  Serious: No
  Sender: FDA-Public Use
  Company Number: US-PFIZER INC-2008053431

PATIENT
  Sex: Female
  Weight: 89.09 kg

DRUGS (5)
  1. LYRICA [Suspect]
     Indication: CONVULSION
     Dates: start: 20071101, end: 20080601
  2. PLAVIX [Concomitant]
  3. NEXIUM [Concomitant]
  4. TOPAMAX [Concomitant]
  5. CARDIOVASCULAR SYSTEM DRUGS [Concomitant]

REACTIONS (6)
  - ABDOMINAL PAIN UPPER [None]
  - CHEST PAIN [None]
  - DIZZINESS [None]
  - PARAESTHESIA [None]
  - SWELLING [None]
  - WEIGHT INCREASED [None]
